FAERS Safety Report 24937558 (Version 7)
Quarter: 2025Q1

REPORT INFORMATION
  Report Type: Spontaneous
  Country: US (occurrence: US)
  Receive Date: 20250206
  Receipt Date: 20250327
  Transmission Date: 20250409
  Serious: Yes (Hospitalization, Other)
  Sender: PFIZER
  Company Number: US-PFIZER INC-202500024740

PATIENT
  Age: 67 Year
  Sex: Female

DRUGS (7)
  1. IBRANCE [Suspect]
     Active Substance: PALBOCICLIB
     Indication: Breast cancer female
     Route: 048
     Dates: start: 20250121
  2. IBRANCE [Suspect]
     Active Substance: PALBOCICLIB
     Route: 048
     Dates: start: 2025
  3. ALENDRONATE [Concomitant]
     Active Substance: ALENDRONATE SODIUM
  4. LETROZOLE [Concomitant]
     Active Substance: LETROZOLE
  5. OXYCODONE [Concomitant]
     Active Substance: OXYCODONE
  6. VALACYCLOVIR [Concomitant]
     Active Substance: VALACYCLOVIR HYDROCHLORIDE
  7. CHOLECALCIFEROL [Concomitant]
     Active Substance: CHOLECALCIFEROL

REACTIONS (8)
  - Neutropenia [Unknown]
  - Pyrexia [Unknown]
  - White blood cell count decreased [Unknown]
  - Dyspnoea [Unknown]
  - Gait inability [Unknown]
  - Fatigue [Not Recovered/Not Resolved]
  - Bone pain [Not Recovered/Not Resolved]
  - Asthenia [Unknown]

NARRATIVE: CASE EVENT DATE: 20250119
